FAERS Safety Report 15766777 (Version 1)
Quarter: 2018Q4

REPORT INFORMATION
  Report Type: Report from Study
  Country: US (occurrence: US)
  Receive Date: 20181227
  Receipt Date: 20181227
  Transmission Date: 20190205
  Serious: Yes (Life-Threatening, Hospitalization)
  Sender: FDA-Public Use
  Company Number: US-TEVA-2018-US-992736

PATIENT
  Age: 58 Year
  Sex: Female

DRUGS (1)
  1. VERAPAMIL [Suspect]
     Active Substance: VERAPAMIL HYDROCHLORIDE
     Dosage: PRESCRIBED DOSE WAS 720MG
     Route: 048

REACTIONS (6)
  - Bradycardia [Unknown]
  - Atrioventricular block complete [Unknown]
  - Accidental overdose [Unknown]
  - Hypotension [Unknown]
  - Syncope [Unknown]
  - Skin laceration [Unknown]
